FAERS Safety Report 4994520-9 (Version None)
Quarter: 2006Q2

REPORT INFORMATION
  Report Type: 
  Country: None (occurrence: None)
  Receive Date: 20060505
  Receipt Date: 20060426
  Transmission Date: 20061013
  Serious: Yes (Other)
  Sender: FDA-Public Use
  Company Number: GB-MERCK-0604GBR00146

PATIENT
  Age: 83 Year
  Sex: Female
  Weight: 94 kg

DRUGS (4)
  1. ZOCOR [Suspect]
     Indication: BLOOD CHOLESTEROL INCREASED
     Route: 065
  2. ZOCOR [Suspect]
     Route: 065
     Dates: end: 20060309
  3. ZOCOR [Suspect]
     Indication: MYOCARDIAL ISCHAEMIA
     Route: 065
  4. ZOCOR [Suspect]
     Route: 065
     Dates: end: 20060309

REACTIONS (4)
  - DEPRESSION [None]
  - DISTURBANCE IN ATTENTION [None]
  - FATIGUE [None]
  - MEMORY IMPAIRMENT [None]
